FAERS Safety Report 21459645 (Version 1)
Quarter: 2022Q4

REPORT INFORMATION
  Report Type: Spontaneous
  Country: US (occurrence: US)
  Receive Date: 20221014
  Receipt Date: 20221014
  Transmission Date: 20230113
  Serious: Yes (Hospitalization, Other)
  Sender: FDA-Public Use
  Company Number: US-TEVA-2022-US-2081464

PATIENT
  Age: 46 Year
  Sex: Male
  Weight: 74 kg

DRUGS (6)
  1. COPAXONE [Suspect]
     Active Substance: GLATIRAMER ACETATE
     Indication: Multiple sclerosis
     Dosage: FORM STRENGTH : 20 MILLIGRAM; UNIT DOSE : 20 MILLIGRAM
     Route: 065
     Dates: start: 2007
  2. COPAXONE [Suspect]
     Active Substance: GLATIRAMER ACETATE
     Dosage: FORM STRENGTH : 40 MILLIGRAM; UNIT DOSE : 40 MILLIGRAM
     Route: 065
  3. GABAPENTIN [Suspect]
     Active Substance: GABAPENTIN
     Indication: Headache
     Dosage: 300 MG 1 OR 2 TABLETS ONCE A DAY IN THE EVENING
     Route: 065
  4. DEVICE [Suspect]
     Active Substance: DEVICE
     Indication: Product used for unknown indication
     Route: 065
  5. METOPROLOL [Concomitant]
     Active Substance: METOPROLOL
     Indication: Product used for unknown indication
     Dosage: 100 MILLIGRAM DAILY; 1 IN THE MORNING AND 1 AT NIGHT
     Route: 048
  6. LOSARTAN [Concomitant]
     Active Substance: LOSARTAN
     Indication: Product used for unknown indication
     Dosage: 25 MILLIGRAM DAILY;

REACTIONS (13)
  - Throat tightness [Unknown]
  - Dyspnoea [Unknown]
  - Loss of consciousness [Unknown]
  - Fall [Unknown]
  - Near death experience [Unknown]
  - Peripheral nervous system neoplasm [Unknown]
  - Anaphylactic reaction [Unknown]
  - Exercise electrocardiogram abnormal [Unknown]
  - Cardiac disorder [Unknown]
  - Product use in unapproved indication [Unknown]
  - Ocular icterus [Unknown]
  - Hypersensitivity [Unknown]
  - Product quality issue [Unknown]

NARRATIVE: CASE EVENT DATE: 20220927
